FAERS Safety Report 16464863 (Version 4)
Quarter: 2019Q4

REPORT INFORMATION
  Report Type: Spontaneous
  Country: US (occurrence: US)
  Receive Date: 20190621
  Receipt Date: 20191216
  Transmission Date: 20200122
  Serious: Yes (Other)
  Sender: FDA-Public Use
  Company Number: US-ASTRAZENECA-2019SE11040

PATIENT
  Age: 67 Year
  Sex: Female
  Weight: 83.9 kg

DRUGS (46)
  1. PROTONIX [Suspect]
     Active Substance: PANTOPRAZOLE SODIUM
     Indication: GASTROOESOPHAGEAL REFLUX DISEASE
     Route: 065
     Dates: start: 2011, end: 2015
  2. ATENOLOL. [Concomitant]
     Active Substance: ATENOLOL
     Indication: BLOOD PRESSURE MEASUREMENT
     Dosage: 07 YEARS CANNOT RECALL DATES
  3. FOLBIC [Concomitant]
     Active Substance: CYANOCOBALAMIN\FOLIC ACID\PYRIDOXINE
     Dosage: 08 YEARS CANNOT RECALL DATES
  4. ZOSTAVAX [Concomitant]
     Active Substance: VARICELLA-ZOSTER VIRUS STRAIN OKA/MERCK LIVE ANTIGEN
  5. PREVACID [Suspect]
     Active Substance: LANSOPRAZOLE
     Indication: GASTROOESOPHAGEAL REFLUX DISEASE
     Route: 065
     Dates: start: 2011, end: 2015
  6. PREVACID [Suspect]
     Active Substance: LANSOPRAZOLE
     Indication: ULCER
     Route: 065
     Dates: start: 2011, end: 2015
  7. LESCOL [Concomitant]
     Active Substance: FLUVASTATIN SODIUM
     Indication: BLOOD CHOLESTEROL
     Dosage: 03 YEARS CANNOT RECALL DATES
  8. FOLIC ACID. [Concomitant]
     Active Substance: FOLIC ACID
     Dosage: CANNOT RECALL DATES
  9. ZANTAC [Concomitant]
     Active Substance: RANITIDINE HYDROCHLORIDE
     Indication: DYSPEPSIA
  10. FLUZONE [Concomitant]
     Active Substance: INFLUENZA A VIRUS A/CALIFORNIA/7/2009 X-179A (H1N1) ANTIGEN (FORMALDEHYDE INACTIVATED)\INFLUENZA A VIRUS A/VICTORIA/210/2009 X-187 (H3N2) ANTIGEN (FORMALDEHYDE INACTIVATED)\INFLUENZA B VIRUS B/BRISBANE/60/2008 ANTIGEN (FORMALDEHYDE INACTIVATED)
  11. NEXIUM [Suspect]
     Active Substance: ESOMEPRAZOLE MAGNESIUM
     Indication: GASTROOESOPHAGEAL REFLUX DISEASE
     Dosage: FOR VARIOUS DATES AND YEARS
     Route: 048
  12. PROTONIX [Suspect]
     Active Substance: PANTOPRAZOLE SODIUM
     Indication: GASTROOESOPHAGEAL REFLUX DISEASE
     Route: 065
  13. VENLAFAXINE [Concomitant]
     Active Substance: VENLAFAXINE HYDROCHLORIDE
     Indication: PANIC DISORDER
     Dosage: 10 YEARS CANNOT RECALL DATES
  14. NORVASC [Concomitant]
     Active Substance: AMLODIPINE BESYLATE
     Indication: BLOOD PRESSURE MEASUREMENT
     Dosage: 05 MONTHS CANNOT RECALL DATES
  15. IRON [Concomitant]
     Active Substance: IRON
     Indication: ANAEMIA
     Dates: start: 2016
  16. FISH OIL [Concomitant]
     Active Substance: FISH OIL
     Indication: CARDIAC DISORDER
     Dates: start: 2016
  17. LIDODERM [Concomitant]
     Active Substance: LIDOCAINE
  18. TRAMADOL. [Concomitant]
     Active Substance: TRAMADOL
  19. AMOXICILLIN. [Concomitant]
     Active Substance: AMOXICILLIN
  20. PRILOSEC [Suspect]
     Active Substance: OMEPRAZOLE MAGNESIUM
     Indication: GASTROOESOPHAGEAL REFLUX DISEASE
     Route: 048
     Dates: start: 2011, end: 2015
  21. PRILOSEC [Suspect]
     Active Substance: OMEPRAZOLE MAGNESIUM
     Indication: ULCER
     Route: 048
     Dates: start: 2011, end: 2015
  22. PRILOSEC [Suspect]
     Active Substance: OMEPRAZOLE MAGNESIUM
     Indication: GASTROOESOPHAGEAL REFLUX DISEASE
     Dosage: GENERIC
     Route: 065
     Dates: start: 2011, end: 2015
  23. PROTONIX [Suspect]
     Active Substance: PANTOPRAZOLE SODIUM
     Indication: ULCER
     Route: 065
  24. TELMISARTAN. [Concomitant]
     Active Substance: TELMISARTAN
     Indication: BLOOD PRESSURE MEASUREMENT
     Dosage: 04 MONTHS CANNOT RECALL DATES
  25. CALCIUM [Concomitant]
     Active Substance: CALCIUM
     Indication: BONE DISORDER
     Dates: start: 2016
  26. TOBRAMYCIN. [Concomitant]
     Active Substance: TOBRAMYCIN
  27. ALPRAZOLAM. [Concomitant]
     Active Substance: ALPRAZOLAM
  28. NEXIUM [Suspect]
     Active Substance: ESOMEPRAZOLE MAGNESIUM
     Indication: ULCER
     Dosage: FOR VARIOUS DATES AND YEARS
     Route: 048
  29. PRILOSEC [Suspect]
     Active Substance: OMEPRAZOLE MAGNESIUM
     Indication: ULCER
     Dosage: GENERIC
     Route: 065
     Dates: start: 2011, end: 2015
  30. CIMETIDINE [Concomitant]
     Active Substance: CIMETIDINE
     Indication: GASTROOESOPHAGEAL REFLUX DISEASE
  31. PEPCID [Concomitant]
     Active Substance: FAMOTIDINE
     Indication: DYSPEPSIA
  32. CHERATUSSIN [Concomitant]
     Active Substance: AMMONIUM CHLORIDE\DEXTROMETHORPHAN\SODIUM CITRATE
  33. ENOXAPARIN [Concomitant]
     Active Substance: ENOXAPARIN
  34. WARFARIN [Concomitant]
     Active Substance: WARFARIN
  35. PRISTIQ EXTENDED-RELEASE [Concomitant]
     Active Substance: DESVENLAFAXINE SUCCINATE
  36. PREDNISONE. [Concomitant]
     Active Substance: PREDNISONE
  37. MYLANTA [Concomitant]
     Active Substance: ALUMINUM HYDROXIDE\DIMETHICONE\MAGNESIUM HYDROXIDE
  38. ADVAIR DISKUS [Concomitant]
     Active Substance: FLUTICASONE PROPIONATE\SALMETEROL XINAFOATE
  39. PRAVASTATIN. [Concomitant]
     Active Substance: PRAVASTATIN
  40. NEXIUM [Suspect]
     Active Substance: ESOMEPRAZOLE MAGNESIUM
     Indication: GASTROOESOPHAGEAL REFLUX DISEASE
     Route: 048
     Dates: start: 2011, end: 2015
  41. NEXIUM [Suspect]
     Active Substance: ESOMEPRAZOLE MAGNESIUM
     Indication: ULCER
     Route: 048
     Dates: start: 2011, end: 2015
  42. PROTONIX [Suspect]
     Active Substance: PANTOPRAZOLE SODIUM
     Indication: ULCER
     Route: 065
     Dates: start: 2011, end: 2015
  43. BENICAR [Concomitant]
     Active Substance: OLMESARTAN MEDOXOMIL
     Indication: BLOOD PRESSURE MEASUREMENT
     Dosage: 5 YEARS CANNOT RECALL DATES
  44. VENLAFAXINE HCL [Concomitant]
     Active Substance: VENLAFAXINE HYDROCHLORIDE
  45. NASONEX [Concomitant]
     Active Substance: MOMETASONE FUROATE
  46. ZONALON [Concomitant]
     Active Substance: DOXEPIN HYDROCHLORIDE

REACTIONS (6)
  - Chronic kidney disease [Unknown]
  - Nephrogenic anaemia [Unknown]
  - Hyperparathyroidism secondary [Unknown]
  - Rebound acid hypersecretion [Unknown]
  - Renal failure [Not Recovered/Not Resolved]
  - Renal injury [Unknown]

NARRATIVE: CASE EVENT DATE: 2013
